FAERS Safety Report 8007757-1 (Version None)
Quarter: 2011Q4

REPORT INFORMATION
  Report Type: 
  Country: None (occurrence: None)
  Receive Date: 20111221
  Receipt Date: 20111123
  Transmission Date: 20120403
  Serious: No
  Sender: FDA-Public Use
  Company Number: 2011PROUSA00778

PATIENT
  Age: 71 Year
  Sex: Male
  Weight: 106.6 kg

DRUGS (1)
  1. PROVENGE [Suspect]
     Indication: PROSTATE CANCER METASTATIC
     Dosage: 250 ML, SINGLE, INTRAVENOUS
     Route: 042
     Dates: start: 20111006, end: 20111006

REACTIONS (6)
  - ARTHRALGIA [None]
  - NON-CARDIAC CHEST PAIN [None]
  - MUSCULOSKELETAL PAIN [None]
  - LETHARGY [None]
  - TREMOR [None]
  - MALAISE [None]
